FAERS Safety Report 19908073 (Version 1)
Quarter: 2021Q4

REPORT INFORMATION
  Report Type: Spontaneous
  Country: US (occurrence: US)
  Receive Date: 20211001
  Receipt Date: 20211001
  Transmission Date: 20220303
  Serious: Yes (Other)
  Sender: FDA-Public Use
  Company Number: US-ALLERGAN-2133283US

PATIENT
  Sex: Female

DRUGS (8)
  1. BYSTOLIC [Suspect]
     Active Substance: NEBIVOLOL HYDROCHLORIDE
     Indication: Cardiovascular disorder
     Dosage: UNK
     Route: 048
  2. NITROGLYCERIN [Concomitant]
     Active Substance: NITROGLYCERIN
  3. VENTOLIN [Concomitant]
     Active Substance: ALBUTEROL SULFATE
     Indication: Asthma
  4. ALBUTEROL SULFATE [Concomitant]
     Active Substance: ALBUTEROL SULFATE
     Dosage: 2-3 TIMES A DAY
  5. AMLODIPINE MESYLATE [Concomitant]
     Active Substance: AMLODIPINE MESYLATE
     Indication: Cardiovascular disorder
  6. RAMIPRIL [Concomitant]
     Active Substance: RAMIPRIL
     Indication: Blood pressure abnormal
  7. RANEXA SR [Concomitant]
     Indication: Cardiovascular disorder
  8. UNSPECIFIED INGREDIENT [Concomitant]
     Active Substance: UNSPECIFIED INGREDIENT
     Indication: Nausea

REACTIONS (8)
  - Blood pressure increased [Unknown]
  - Cardiovascular disorder [Not Recovered/Not Resolved]
  - Asthma [Unknown]
  - Chest pain [Unknown]
  - Dyspnoea [Unknown]
  - Peripheral swelling [Unknown]
  - Nausea [Unknown]
  - Product lot number issue [Unknown]

NARRATIVE: CASE EVENT DATE: 20210401
